FAERS Safety Report 16640972 (Version 1)
Quarter: 2019Q3

REPORT INFORMATION
  Report Type: Spontaneous
  Country: US (occurrence: US)
  Receive Date: 20190729
  Receipt Date: 20190729
  Transmission Date: 20191004
  Serious: No
  Sender: FDA-Public Use
  Company Number: US-GLAXOSMITHKLINE-US2019133489

PATIENT
  Age: 65 Year
  Sex: Male

DRUGS (3)
  1. TAMSULOSIN HYDROCHLORIDE CAPSULE [Concomitant]
     Indication: PRODUCT USED FOR UNKNOWN INDICATION
     Dosage: UNK
  2. NICODERM CQ [Suspect]
     Active Substance: NICOTINE
     Indication: SMOKING CESSATION THERAPY
     Dosage: 21 MG, QD
     Route: 062
     Dates: start: 20190717, end: 20190720
  3. CARTIA [Concomitant]
     Indication: PRODUCT USE IN UNAPPROVED INDICATION
     Dosage: UNK

REACTIONS (2)
  - Vomiting [Not Recovered/Not Resolved]
  - Dizziness [Not Recovered/Not Resolved]

NARRATIVE: CASE EVENT DATE: 20190720
